FAERS Safety Report 13447853 (Version 2)
Quarter: 2017Q2

REPORT INFORMATION
  Report Type: Report from Study
  Country: JP (occurrence: JP)
  Receive Date: 20170417
  Receipt Date: 20170609
  Transmission Date: 20170830
  Serious: Yes (Death, Hospitalization, Other)
  Sender: FDA-Public Use
  Company Number: JP-VIIV HEALTHCARE LIMITED-JP2015JPN079002

PATIENT
  Age: 7 Decade
  Sex: Male

DRUGS (9)
  1. TRUVADA [Suspect]
     Active Substance: EMTRICITABINE\TENOFOVIR DISOPROXIL FUMARATE
     Indication: HIV INFECTION
     Dosage: 1 DF, 1D
     Route: 048
     Dates: start: 20140401, end: 20170306
  2. CODEINE PHOSPHATE HYDRATE [Concomitant]
     Active Substance: CODEINE PHOSPHATE
     Indication: COUGH
     Dosage: 2 G, TID
     Dates: start: 20170221, end: 20170306
  3. MORPHINE HYDROCHLORIDE INJECTION [Concomitant]
     Indication: CANCER PAIN
     Dosage: UNK
     Dates: start: 20170301, end: 20170307
  4. NOVAMIN (JAPAN) [Concomitant]
     Indication: NAUSEA
     Dosage: 5 MG, TID
     Dates: start: 20170222, end: 20170306
  5. DOLUTEGRAVIR [Suspect]
     Active Substance: DOLUTEGRAVIR
     Indication: HIV INFECTION
     Dosage: 50 MG, 1D
     Route: 048
     Dates: start: 20140917, end: 20170306
  6. LYRICA [Concomitant]
     Active Substance: PREGABALIN
     Indication: POST HERPETIC NEURALGIA
     Dosage: 75 MG, QD
     Dates: start: 20140401, end: 20150428
  7. NORVIR [Concomitant]
     Active Substance: RITONAVIR
     Indication: HIV INFECTION
     Dosage: 100 MG, UNK
     Dates: start: 20140401, end: 20140916
  8. PREZISTANAIVE [Concomitant]
     Active Substance: DARUNAVIR
     Indication: HIV INFECTION
     Dosage: 800 MG, QD
     Route: 048
     Dates: start: 20140401, end: 20140916
  9. OXYCODONE [Concomitant]
     Active Substance: OXYCODONE
     Indication: CANCER PAIN
     Dosage: UNK, BID
     Dates: start: 20170222, end: 20170301

REACTIONS (3)
  - Liver disorder [Not Recovered/Not Resolved]
  - Hyperuricaemia [Not Recovered/Not Resolved]
  - Lung adenocarcinoma [Fatal]

NARRATIVE: CASE EVENT DATE: 20141111
